FAERS Safety Report 9096140 (Version 4)
Quarter: 2013Q3

REPORT INFORMATION
  Report Type: Spontaneous
  Country: JP (occurrence: JP)
  Receive Date: 20130207
  Receipt Date: 20130821
  Transmission Date: 20140515
  Serious: Yes (Hospitalization, Other)
  Sender: FDA-Public Use
  Company Number: JP-PFIZER INC-2013044533

PATIENT
  Age: 54 Year
  Sex: Male
  Weight: 64 kg

DRUGS (12)
  1. ZOSYN [Suspect]
     Indication: PANCREATITIS
     Dosage: 13.5 G
     Route: 041
     Dates: start: 20120801, end: 20120820
  2. ZOSYN [Suspect]
     Indication: ABDOMINAL ABSCESS
     Dosage: 13.5 G
     Route: 041
     Dates: start: 20120826, end: 20120827
  3. ZOSYN [Suspect]
     Indication: PYREXIA
  4. OMEPRAZOLE [Suspect]
     Indication: ABDOMINAL PAIN UPPER
     Dosage: UNK
     Route: 041
     Dates: start: 20120731, end: 20120809
  5. OMEPRAL [Concomitant]
     Indication: PANCREATITIS
     Dosage: UNK
     Route: 041
  6. DAI-KENCHU-TO [Concomitant]
     Dosage: 7.5 G/DAY
     Route: 048
     Dates: start: 20120810, end: 20120825
  7. URSO [Concomitant]
     Indication: HEPATIC FUNCTION ABNORMAL
     Dosage: 300 MG/DAY
     Route: 048
     Dates: start: 20120810, end: 20120825
  8. GASMOTIN [Concomitant]
     Indication: ABDOMINAL PAIN UPPER
     Dosage: 15 MG/DAY
     Route: 048
     Dates: start: 20120810, end: 20120825
  9. RANITIDINE [Concomitant]
     Indication: ABDOMINAL PAIN UPPER
     Dosage: 150 MG/DAY
     Route: 048
     Dates: start: 20120810, end: 20120825
  10. LIVACT [Concomitant]
     Indication: HYPOALBUMINAEMIA
     Dosage: 12.45 G/DAY
     Route: 048
     Dates: start: 20120813, end: 20120825
  11. LOXONIN [Concomitant]
     Indication: PAIN
     Dosage: 180 MG/DAY
     Route: 048
     Dates: start: 20120814, end: 20120825
  12. REBAMIPIDE [Concomitant]
     Indication: PAIN
     Dosage: 300 MG/DAY
     Route: 048
     Dates: start: 20120814, end: 20120825

REACTIONS (2)
  - Acute generalised exanthematous pustulosis [Recovered/Resolved]
  - Rash [Recovering/Resolving]
